FAERS Safety Report 9195667 (Version 2)
Quarter: 2013Q2

REPORT INFORMATION
  Report Type: Spontaneous
  Country: DE (occurrence: DE)
  Receive Date: 20130328
  Receipt Date: 20130418
  Transmission Date: 20140414
  Serious: Yes (Other)
  Sender: FDA-Public Use
  Company Number: DE-AMGEN-DEUSP2013019675

PATIENT
  Age: 74 Year
  Sex: Female
  Weight: 75 kg

DRUGS (2)
  1. PROLIA [Suspect]
     Indication: PRODUCT USED FOR UNKNOWN INDICATION
     Dosage: UNK UNK, Q6MO
     Route: 058
     Dates: start: 20120401
  2. ZOLPIDEM [Concomitant]
     Indication: SLEEP DISORDER
     Dosage: AS NEEDED
     Dates: start: 20110217, end: 20130307

REACTIONS (1)
  - Leukocytoclastic vasculitis [Not Recovered/Not Resolved]
